APPROVED DRUG PRODUCT: VARDENAFIL HYDROCHLORIDE
Active Ingredient: VARDENAFIL HYDROCHLORIDE
Strength: 10MG
Dosage Form/Route: TABLET, ORALLY DISINTEGRATING;ORAL
Application: A208324 | Product #001 | TE Code: AB
Applicant: ALEMBIC PHARMACEUTICALS LTD
Approved: Nov 16, 2018 | RLD: No | RS: Yes | Type: RX